FAERS Safety Report 22205674 (Version 2)
Quarter: 2023Q2

REPORT INFORMATION
  Report Type: Spontaneous
  Country: ES (occurrence: ES)
  Receive Date: 20230413
  Receipt Date: 20230428
  Transmission Date: 20230721
  Serious: Yes (Other)
  Sender: FDA-Public Use
  Company Number: ES-AEMPS-1353160

PATIENT
  Age: 41 Year
  Sex: Male

DRUGS (1)
  1. MVASI [Suspect]
     Active Substance: BEVACIZUMAB-AWWB
     Indication: Age-related macular degeneration
     Dosage: 25 MILLIGRAM PER MILLILITRE CONCENTRATE FOR SOLUTION FOR INFUSION, 1 VIAL OF 16 ML
     Route: 047
     Dates: start: 20221213, end: 20221213

REACTIONS (1)
  - Bacterial endophthalmitis [Recovered/Resolved with Sequelae]

NARRATIVE: CASE EVENT DATE: 20221215
